FAERS Safety Report 14843701 (Version 1)
Quarter: 2018Q2

REPORT INFORMATION
  Report Type: Spontaneous
  Country: BR (occurrence: BR)
  Receive Date: 20180503
  Receipt Date: 20180503
  Transmission Date: 20180711
  Serious: Yes (Other)
  Sender: FDA-Public Use
  Company Number: PHHY2018BR073711

PATIENT
  Age: 19 Year
  Sex: Female

DRUGS (2)
  1. SULFAMETHOXAZOLE+TRIMETHOPRIM [Suspect]
     Active Substance: SULFAMETHOXAZOLE\TRIMETHOPRIM
     Indication: PITYRIASIS ROSEA
     Dosage: UNK
     Route: 065
  2. SULFAMETHOXAZOLE+TRIMETHOPRIM [Suspect]
     Active Substance: SULFAMETHOXAZOLE\TRIMETHOPRIM
     Indication: ACNE

REACTIONS (3)
  - Jarisch-Herxheimer reaction [Unknown]
  - Secondary syphilis [Unknown]
  - Skin lesion [Unknown]
